FAERS Safety Report 9215967 (Version 1)
Quarter: 2013Q2

REPORT INFORMATION
  Report Type: Spontaneous
  Country: US (occurrence: US)
  Receive Date: 20130408
  Receipt Date: 20130408
  Transmission Date: 20140414
  Serious: No
  Sender: FDA-Public Use
  Company Number: US-009507513-1304USA001815

PATIENT
  Sex: Female

DRUGS (2)
  1. DULERA [Suspect]
     Indication: ASTHMA
     Dosage: 2 PUFFS MORNING AND NIGHT
     Route: 055
     Dates: start: 201302
  2. DULERA [Suspect]
     Dosage: 1 PUFF
     Route: 055
     Dates: start: 2013

REACTIONS (9)
  - Dry mouth [Unknown]
  - Fatigue [Unknown]
  - Chills [Unknown]
  - Hypogeusia [Unknown]
  - Tongue disorder [Unknown]
  - Weight increased [Unknown]
  - Anosmia [Unknown]
  - Heart rate increased [Unknown]
  - Pharyngeal oedema [Unknown]
